FAERS Safety Report 18247031 (Version 1)
Quarter: 2020Q3

REPORT INFORMATION
  Report Type: Spontaneous
  Country: JO (occurrence: JO)
  Receive Date: 20200909
  Receipt Date: 20200909
  Transmission Date: 20201103
  Serious: Yes (Other)
  Sender: FDA-Public Use
  Company Number: JO-AMERICAN REGENT INC-2020001848

PATIENT
  Age: 41 Year
  Sex: Female

DRUGS (2)
  1. FERINJECT [Suspect]
     Active Substance: FERRIC CARBOXYMALTOSE
     Indication: SERUM FERRITIN DECREASED
     Dosage: 500 MILLIGRAM (SLOW RATE)
     Dates: start: 20200807
  2. FERINJECT [Suspect]
     Active Substance: FERRIC CARBOXYMALTOSE
     Indication: IRON DEFICIENCY ANAEMIA

REACTIONS (5)
  - Hypoaesthesia oral [Unknown]
  - Swelling [Unknown]
  - Eyelid ptosis [Unknown]
  - Paraesthesia oral [Unknown]
  - Swelling face [Unknown]

NARRATIVE: CASE EVENT DATE: 20200807
